FAERS Safety Report 23719815 (Version 2)
Quarter: 2024Q2

REPORT INFORMATION
  Report Type: Report from Study
  Country: US (occurrence: US)
  Receive Date: 20240408
  Receipt Date: 20240608
  Transmission Date: 20240716
  Serious: Yes (Other)
  Sender: FDA-Public Use
  Company Number: US-002147023-NVSC2024US073179

PATIENT
  Sex: Female

DRUGS (1)
  1. KESIMPTA [Suspect]
     Active Substance: OFATUMUMAB
     Indication: Product used for unknown indication
     Dosage: 20 MG, QMO
     Route: 058

REACTIONS (7)
  - Multiple sclerosis relapse [Unknown]
  - Diplopia [Unknown]
  - Fatigue [Unknown]
  - Muscle spasms [Unknown]
  - Balance disorder [Unknown]
  - Disorientation [Unknown]
  - Headache [Recovered/Resolved]
